FAERS Safety Report 4927144-X (Version None)
Quarter: 2006Q1

REPORT INFORMATION
  Report Type: 
  Country: None (occurrence: None)
  Receive Date: 20060222
  Receipt Date: 20060210
  Transmission Date: 20060701
  Serious: Yes (Other)
  Sender: FDA-Public Use
  Company Number: 2006021371

PATIENT
  Age: 63 Year
  Sex: Female
  Weight: 99.7913 kg

DRUGS (5)
  1. LIPITOR [Suspect]
     Indication: BLOOD CHOLESTEROL INCREASED
     Dosage: 60 MG (60 MG, 1 IN 1 D),
     Dates: start: 20000101
  2. FOSAMAX [Concomitant]
  3. LOPRESSOR [Concomitant]
  4. LASIX [Concomitant]
  5. ALL OTHER THERAPEUTIC PRODUCTS (ALL OTHER THERAPEUTIC PRODUCTS) [Concomitant]

REACTIONS (9)
  - EMPHYSEMA [None]
  - MUSCLE SPASMS [None]
  - NODULE [None]
  - PAIN IN EXTREMITY [None]
  - RENAL DISORDER [None]
  - RENAL FAILURE [None]
  - SHOULDER PAIN [None]
  - SPINAL DISORDER [None]
  - THYROID DISORDER [None]
